FAERS Safety Report 10057204 (Version 1)
Quarter: 2014Q2

REPORT INFORMATION
  Report Type: Spontaneous
  Country: ES (occurrence: ES)
  Receive Date: 20140403
  Receipt Date: 20140403
  Transmission Date: 20141212
  Serious: Yes (Other)
  Sender: FDA-Public Use
  Company Number: ES-B.I. PHARMACEUTICALS,INC./RIDGEFIELD-2014-BI-14897GD

PATIENT
  Age: 75 Year
  Sex: Male

DRUGS (4)
  1. MELOXICAM [Suspect]
     Indication: ALLERGY TEST
     Dosage: 3.75 MG
     Route: 048
  2. ASPIRIN [Concomitant]
     Indication: CEREBROVASCULAR ACCIDENT
     Dosage: 100 MG
     Route: 065
     Dates: start: 2001
  3. OMEPRAZOLE [Concomitant]
     Indication: BACK PAIN
     Dosage: 20 MG
     Route: 065
     Dates: start: 201012
  4. PARACETAMOL [Concomitant]
     Indication: BACK PAIN
     Dosage: 650 MG
     Route: 065

REACTIONS (4)
  - Chest discomfort [Recovered/Resolved]
  - Dyspnoea [Recovered/Resolved]
  - Cough [Recovered/Resolved]
  - Nasal congestion [Recovered/Resolved]
